FAERS Safety Report 6290844-6 (Version None)
Quarter: 2009Q3

REPORT INFORMATION
  Report Type: 
  Country: None (occurrence: None)
  Receive Date: 20090730
  Receipt Date: 20090723
  Transmission Date: 20100115
  Serious: Yes (Other)
  Sender: FDA-Public Use
  Company Number: US-AMGEN-QUU350327

PATIENT
  Sex: Male

DRUGS (16)
  1. ARANESP [Suspect]
     Indication: RENAL FAILURE CHRONIC
     Route: 058
     Dates: start: 20090106, end: 20090721
  2. PROCRIT [Suspect]
     Indication: RENAL FAILURE CHRONIC
  3. FERROUS SULFATE TAB [Concomitant]
  4. ACIPHEX [Concomitant]
  5. NORVASC [Concomitant]
  6. COREG [Concomitant]
  7. ISOSORBIDE DINITRATE [Concomitant]
  8. REQUIP [Concomitant]
  9. NITROSTAT [Concomitant]
  10. ASPIRIN [Concomitant]
  11. MAGNESIUM [Concomitant]
  12. CALTRATE [Concomitant]
  13. VITAMIN B-12 [Concomitant]
  14. VITAMIN B6 [Concomitant]
  15. FOLIC ACID [Concomitant]
  16. LOVAZA [Concomitant]

REACTIONS (3)
  - DRUG INEFFECTIVE [None]
  - HAEMATOCRIT DECREASED [None]
  - HAEMOGLOBIN DECREASED [None]
